FAERS Safety Report 6630890-3 (Version None)
Quarter: 2010Q1

REPORT INFORMATION
  Report Type: 
  Country: None (occurrence: None)
  Receive Date: 20100311
  Receipt Date: 20100303
  Transmission Date: 20100710
  Serious: Yes (Other)
  Sender: FDA-Public Use
  Company Number: US-BAXTER-2010BH004276

PATIENT
  Age: 63 Year
  Sex: Male

DRUGS (8)
  1. EXTRANEAL [Suspect]
     Indication: PERITONEAL DIALYSIS
     Route: 033
     Dates: start: 20090601
  2. PREDNISONE [Concomitant]
     Indication: LUPUS NEPHRITIS
     Route: 065
  3. LEVEMIR [Concomitant]
     Indication: DIABETES MELLITUS
     Route: 065
     Dates: start: 20100101, end: 20100201
  4. LEVEMIR [Concomitant]
     Route: 065
     Dates: start: 20100201
  5. INSULIN ASPART [Concomitant]
     Indication: DIABETES MELLITUS
     Route: 065
     Dates: start: 20100101
  6. INSULIN ASPART [Concomitant]
     Route: 065
     Dates: start: 20100101
  7. HOMEOPATHIC PRODUCT [Concomitant]
     Indication: CONSTIPATION
     Route: 065
  8. DIANEAL [Concomitant]
     Indication: PERITONEAL DIALYSIS
     Route: 033
     Dates: start: 20091001

REACTIONS (6)
  - BLOOD GLUCOSE INCREASED [None]
  - CONFUSIONAL STATE [None]
  - DEVICE INTERACTION [None]
  - HYPERHIDROSIS [None]
  - HYPOGLYCAEMIA [None]
  - MALAISE [None]
